FAERS Safety Report 5091670-6 (Version None)
Quarter: 2006Q3

REPORT INFORMATION
  Report Type: 
  Country: None (occurrence: None)
  Receive Date: 20060824
  Receipt Date: 20060713
  Transmission Date: 20061208
  Serious: Yes (Other)
  Sender: FDA-Public Use
  Company Number: 2006099689

PATIENT
  Age: 73 Year
  Sex: Female

DRUGS (10)
  1. ZYRTEC [Suspect]
     Dosage: 10 MG (1 IN 1 D), ORAL
     Route: 048
  2. ASPIRIN [Concomitant]
  3. RANITIDINE HYDROCHLORIDE [Concomitant]
  4. VITAMIN B2 (RIBOFLAVIN) [Concomitant]
  5. VITAMIN C (VITAMIN C) [Concomitant]
  6. VITAMEDIN CAPSULE (BENFOTIAMINE, CYANOCOBALAMIN, PYRIDOXINE HYDROCHLOR [Concomitant]
  7. NILVADIPINE (NILVADIPINE) [Concomitant]
  8. AZOSEMIDE (AZOSEMIDE) [Concomitant]
  9. PRAVASTATIN [Concomitant]
  10. STOMIN A (NICOTINAMIDE, PAPAVERINE HYDROCHLORIDE) [Concomitant]

REACTIONS (1)
  - ELECTROCARDIOGRAM QT PROLONGED [None]
